FAERS Safety Report 6390531-X (Version None)
Quarter: 2009Q4

REPORT INFORMATION
  Report Type: 
  Country: None (occurrence: None)
  Receive Date: 20091005
  Receipt Date: 20091005
  Transmission Date: 20100525
  Serious: Yes (Life-Threatening, Disabling, Other)
  Sender: FDA-Public Use
  Company Number: None

PATIENT
  Sex: Male
  Weight: 83.0083 kg

DRUGS (1)
  1. FLUCONAZOLE [Suspect]
     Indication: PNEUMONIA BACTERIAL
     Dosage: 2 TAB 2/DAY PO
     Route: 048
     Dates: start: 20080901, end: 20090601

REACTIONS (4)
  - APPARENT LIFE THREATENING EVENT [None]
  - DRUG INEFFECTIVE [None]
  - PRODUCT MEASURED POTENCY ISSUE [None]
  - PRODUCT SUBSTITUTION ISSUE [None]
